FAERS Safety Report 5115875-0 (Version None)
Quarter: 2006Q3

REPORT INFORMATION
  Report Type: 
  Country: None (occurrence: None)
  Receive Date: 20060926
  Receipt Date: 20060926
  Transmission Date: 20061208
  Serious: Yes (Other)
  Sender: FDA-Public Use
  Company Number: None

PATIENT
  Age: 74 Year
  Sex: Male
  Weight: 154.5 kg

DRUGS (26)
  1. LISINOPRIL [Suspect]
  2. VALSARTAN [Concomitant]
  3. DIPHENHYDRAMINE HCL [Concomitant]
  4. TRIAMCINOLONE ACETONIDE [Concomitant]
  5. ISOSORBIDE DINITRATE [Concomitant]
  6. ALBUTEROL SULFATE AND IPRATROPIUM BROMIDE [Concomitant]
  7. INSULIN [Concomitant]
  8. CYANOCOBALAMIN [Concomitant]
  9. ACETAMINOPHEN [Concomitant]
  10. WARFARIN SODIUM [Concomitant]
  11. ALOH/MGOH/SIMTH [Concomitant]
  12. CARVEDILOL [Concomitant]
  13. LACTASE ENZYME [Concomitant]
  14. LISINOPRIL [Concomitant]
  15. SIMVASTATIN [Concomitant]
  16. HYPROMELLOSE [Concomitant]
  17. SODIUM CHLORIDE [Concomitant]
  18. ARTIFICIAL SALIVA LIQUID [Concomitant]
  19. FUROSEMIDE [Concomitant]
  20. OMEPRAZOLE [Concomitant]
  21. NYSTATIN [Concomitant]
  22. FERROUS SULFATE TAB [Concomitant]
  23. DORZOLAMIDE [Concomitant]
  24. ASPIRIN [Concomitant]
  25. NITROGLYCERIN [Concomitant]
  26. MILK OF MAGNESIA TAB [Concomitant]

REACTIONS (1)
  - RASH [None]
